FAERS Safety Report 12319437 (Version 1)
Quarter: 2016Q2

REPORT INFORMATION
  Report Type: Spontaneous
  Country: AU (occurrence: AU)
  Receive Date: 20160429
  Receipt Date: 20160429
  Transmission Date: 20160815
  Serious: Yes (Hospitalization, Disabling)
  Sender: FDA-Public Use
  Company Number: AU-PFIZER INC-2016232466

PATIENT
  Age: 49 Year
  Sex: Female

DRUGS (1)
  1. TRITACE [Suspect]
     Active Substance: RAMIPRIL
     Dosage: 2 DF, DAILY
     Route: 065
     Dates: start: 20110314, end: 20110316

REACTIONS (2)
  - Delirium [Unknown]
  - Suicide attempt [Unknown]

NARRATIVE: CASE EVENT DATE: 20110314
